FAERS Safety Report 10163285 (Version 1)
Quarter: 2014Q2

REPORT INFORMATION
  Report Type: Spontaneous
  Country: DE (occurrence: DE)
  Receive Date: 20140509
  Receipt Date: 20140509
  Transmission Date: 20141212
  Serious: Yes (Other)
  Sender: FDA-Public Use
  Company Number: PHHY2014DE055984

PATIENT
  Age: 56 Year
  Sex: Female

DRUGS (1)
  1. TEGRETAL RETARD [Suspect]
     Indication: EPILEPSY
     Dosage: 400 MG, UNK
     Route: 048

REACTIONS (3)
  - Cerebrovascular accident [Recovered/Resolved with Sequelae]
  - Memory impairment [Not Recovered/Not Resolved]
  - Eating disorder [Not Recovered/Not Resolved]
